FAERS Safety Report 4411244-7 (Version None)
Quarter: 2004Q3

REPORT INFORMATION
  Report Type: 
  Country: None (occurrence: None)
  Receive Date: 20040727
  Receipt Date: 20040722
  Transmission Date: 20050211
  Serious: Yes (Other)
  Sender: FDA-Public Use
  Company Number: GBWYE822014JUN04

PATIENT
  Age: 37 Year
  Sex: Female

DRUGS (9)
  1. RAPAMUNE [Suspect]
     Indication: BLOOD CREATININE INCREASED
     Dosage: 3MG DAILY ORAL
     Route: 048
     Dates: start: 20040324
  2. RAPAMUNE [Suspect]
     Indication: IMMUNOSUPPRESSANT DRUG THERAPY
     Dosage: 3MG DAILY ORAL
     Route: 048
     Dates: start: 20040324
  3. RAPAMUNE [Suspect]
     Indication: RENAL TRANSPLANT
     Dosage: 3MG DAILY ORAL
     Route: 048
     Dates: start: 20040324
  4. MYCOPHENOLATE MOFETIL (MYCOPHENOLATE MOFETIL) [Concomitant]
  5. PERINDOPRIL (PERINDOPRIL) [Concomitant]
  6. AMLODIPINE [Concomitant]
  7. ATENOLOL [Concomitant]
  8. RANITIDINE [Concomitant]
  9. PREDNISOLONE [Concomitant]

REACTIONS (2)
  - GENITAL DISORDER FEMALE [None]
  - MENSTRUATION IRREGULAR [None]
